FAERS Safety Report 4936306-7 (Version None)
Quarter: 2006Q1

REPORT INFORMATION
  Report Type: 
  Country: None (occurrence: None)
  Receive Date: 20060127
  Receipt Date: 20051115
  Transmission Date: 20060701
  Serious: Yes (Other)
  Sender: FDA-Public Use
  Company Number: 2005157964

PATIENT
  Age: 44 Year
  Sex: Female
  Weight: 47.6277 kg

DRUGS (5)
  1. LYRICA [Suspect]
     Indication: FACIAL NEURALGIA
     Dosage: 100 MG (100 MG,1 IN 1 D),ORAL
     Route: 048
     Dates: start: 20051001
  2. BENADRYL [Suspect]
     Indication: INSOMNIA
  3. BENADRYL [Suspect]
     Indication: PAIN
  4. TRILEPTAL [Suspect]
     Indication: ILL-DEFINED DISORDER
  5. ZANAFLEX [Suspect]
     Indication: ILL-DEFINED DISORDER

REACTIONS (3)
  - DRY MOUTH [None]
  - GLOSSITIS [None]
  - GLOSSODYNIA [None]
